FAERS Safety Report 7895838-2 (Version None)
Quarter: 2011Q4

REPORT INFORMATION
  Report Type: 
  Country: None (occurrence: None)
  Receive Date: 20111104
  Receipt Date: 20111104
  Transmission Date: 20120403
  Serious: Yes (Other)
  Sender: FDA-Public Use
  Company Number: None

PATIENT
  Age: 73 Year
  Sex: Female
  Weight: 70 kg

DRUGS (1)
  1. LISTERINE FRESHBURST (ORAL CARE PRODUCTS) LIQUID [Suspect]
     Indication: PRODUCT USED FOR UNKNOWN INDICATION
     Dosage: , 2 IN 1 DAY, ORAL
     Route: 048

REACTIONS (4)
  - THROAT TIGHTNESS [None]
  - CHOKING [None]
  - ACCIDENTAL EXPOSURE [None]
  - DYSPHAGIA [None]
